FAERS Safety Report 9721513 (Version 1)
Quarter: 2013Q4

REPORT INFORMATION
  Report Type: Spontaneous
  Country: US (occurrence: US)
  Receive Date: 20131130
  Receipt Date: 20131130
  Transmission Date: 20140711
  Serious: Yes (Death, Hospitalization)
  Sender: FDA-Public Use
  Company Number: US-INDICUS PHARMA-000205

PATIENT
  Age: 86 Year
  Sex: Female

DRUGS (5)
  1. ATENOLOL [Suspect]
     Route: 048
  2. VALSARTAN/HYDROCHLOORTHIAZIDE [Suspect]
     Route: 048
  3. ACETAMINOPHEN [Suspect]
     Route: 048
  4. AMLODIPINE [Suspect]
     Route: 048
  5. METFORMIN HYDROCHLORIDE [Suspect]

REACTIONS (2)
  - Completed suicide [Fatal]
  - Exposure via ingestion [Fatal]
